FAERS Safety Report 23445690 (Version 1)
Quarter: 2024Q1

REPORT INFORMATION
  Report Type: Spontaneous
  Country: FR (occurrence: FR)
  Receive Date: 20240126
  Receipt Date: 20240126
  Transmission Date: 20240410
  Serious: Yes (Life-Threatening, Hospitalization)
  Sender: FDA-Public Use
  Company Number: FR-ROCHE-3489596

PATIENT
  Age: 55 Year
  Sex: Female
  Weight: 92 kg

DRUGS (4)
  1. CAPECITABINE [Suspect]
     Active Substance: CAPECITABINE
     Dosage: ON 06/SEP/20223 SHE RECEIVED LAST DOSE OF CAPECITABINE PRIOR TO SAE (CYCLE 8)
     Route: 048
     Dates: start: 20230324
  2. OXALIPLATIN [Suspect]
     Active Substance: OXALIPLATIN
     Dosage: ON 12/JUL/2023 SHE RECEIVED LAST DOSE OF OXALIPLATIN PRIOR TO SAE.
     Dates: start: 20230324
  3. ATEZOLIZUMAB [Suspect]
     Active Substance: ATEZOLIZUMAB
     Indication: Colorectal cancer metastatic
     Dosage: ON 06/SEP/2023 SHE RECEIVED LAST DOSE OF ATEZOLIZUMAB PRIOR TO SAE (CYCLE 8)
     Dates: start: 20230324
  4. BEVACIZUMAB [Suspect]
     Active Substance: BEVACIZUMAB
     Dosage: ON 06/SEP/2023 SHE RECEIVED LAST DOSE OF BEVACIZUMAB PRIOR TO SAE (CYCLE 06)/INFUSION, SOLUTION
     Dates: start: 20230510

REACTIONS (1)
  - Umbilical hernia [Recovered/Resolved with Sequelae]

NARRATIVE: CASE EVENT DATE: 20230930
